FAERS Safety Report 8923462 (Version 2)
Quarter: 2012Q4

REPORT INFORMATION
  Report Type: 
  Country: GB (occurrence: GB)
  Receive Date: 20121123
  Receipt Date: 20121203
  Transmission Date: 20130627
  Serious: Yes (Life-Threatening, Hospitalization, Other)
  Sender: FDA-Public Use
  Company Number: GB-UCBSA-071247

PATIENT
  Age: 50 Year
  Sex: Female
  Weight: 76.5 kg

DRUGS (8)
  1. CIMZIA [Suspect]
     Indication: RHEUMATOID ARTHRITIS
     Route: 058
     Dates: start: 20120413, end: 20121022
  2. FOLIC ACID [Concomitant]
     Dosage: DOSE: 5 MG WEEKLY
  3. VALSARTAN [Concomitant]
     Dosage: 80 mg/day
  4. METHOTREXATE [Concomitant]
     Route: 048
     Dates: start: 20110105, end: 20121024
  5. LEFLUNOMIDE [Concomitant]
     Route: 048
     Dates: start: 20110105
  6. HYDROXYCHLOROQUINE [Concomitant]
     Route: 048
     Dates: start: 20110105
  7. BENDROFLUMETHIAZIDE [Concomitant]
     Route: 048
  8. AMLODIPINE [Concomitant]
     Dosage: 5 mg/day

REACTIONS (3)
  - Renal cell carcinoma [Not Recovered/Not Resolved]
  - Metastases to lung [Unknown]
  - Pathological fracture [Unknown]
